FAERS Safety Report 18823898 (Version 1)
Quarter: 2021Q1

REPORT INFORMATION
  Report Type: Spontaneous
  Country: US (occurrence: US)
  Receive Date: 20210201
  Receipt Date: 20210201
  Transmission Date: 20210419
  Serious: No
  Sender: FDA-Public Use
  Company Number: US-ABBVIE-20K-163-3254289-00

PATIENT
  Age: 71 Year
  Sex: Female

DRUGS (2)
  1. HUMIRA [Suspect]
     Active Substance: ADALIMUMAB
     Indication: CROHN^S DISEASE
     Route: 058
     Dates: start: 20200117, end: 20200117
  2. HUMIRA [Suspect]
     Active Substance: ADALIMUMAB
     Indication: CROHN^S DISEASE
     Route: 058
     Dates: start: 20200103, end: 20200103

REACTIONS (6)
  - Injection site rash [Recovering/Resolving]
  - Hypersensitivity [Recovering/Resolving]
  - Swelling face [Recovering/Resolving]
  - Erythema [Recovering/Resolving]
  - Injection site hypersensitivity [Recovering/Resolving]
  - Injection site erythema [Recovering/Resolving]

NARRATIVE: CASE EVENT DATE: 20200120
